FAERS Safety Report 7996340-X (Version None)
Quarter: 2011Q4

REPORT INFORMATION
  Report Type: 
  Country: None (occurrence: None)
  Receive Date: 20111220
  Receipt Date: 20111207
  Transmission Date: 20120403
  Serious: Yes (Hospitalization, Other)
  Sender: FDA-Public Use
  Company Number: US-ELI_LILLY_AND_COMPANY-US201102005611

PATIENT
  Sex: Female
  Weight: 48 kg

DRUGS (22)
  1. FORTEO [Suspect]
     Indication: OSTEOPOROSIS
     Dosage: 20 UG, DAILY (1/D)
     Route: 058
     Dates: start: 20101014, end: 20110414
  2. FORTEO [Suspect]
     Dosage: 20 UG, QD
     Route: 058
     Dates: start: 20110417, end: 20110908
  3. AMLODIPINE [Concomitant]
     Dosage: 2.5 MG, QD
     Route: 048
     Dates: start: 20100917
  4. LISINOPRIL [Concomitant]
     Dosage: 10 MG, QD
     Route: 048
     Dates: start: 20060424
  5. DETROL [Concomitant]
     Dosage: 4 MG, QD
     Route: 048
     Dates: start: 20050415
  6. BIAXIN [Concomitant]
  7. PROTONIX [Concomitant]
     Dosage: 40 MG, QD
     Route: 048
     Dates: start: 20080512
  8. VITAMIN E [Concomitant]
     Dosage: 400 IU, QD
     Route: 048
     Dates: start: 20050228
  9. CENTRUM SILVER [Concomitant]
     Dosage: 1 DF, QD
     Route: 048
     Dates: start: 20110414
  10. PANTOPRAZOLE [Concomitant]
     Dosage: 40 MG, QD
     Route: 048
     Dates: start: 20080512
  11. FORTEO [Suspect]
     Dosage: 20 UG, QD
     Route: 058
  12. VITAMIN C [Concomitant]
     Dosage: 500 MG, QD
     Route: 048
     Dates: start: 20110414
  13. FISH OIL [Concomitant]
     Dosage: 1200 MG, QD
     Route: 048
     Dates: start: 20110414
  14. ULTRAM [Concomitant]
     Indication: PAIN
     Dosage: 50 MG, PRN
     Route: 048
     Dates: start: 20110613
  15. CHERATUSSIN AC [Concomitant]
     Indication: COUGH
     Dosage: UNK UNK, PRN
     Dates: start: 20110408
  16. PROMETHAZINE [Concomitant]
     Dosage: UNK, PRN
  17. ANTIVERT [Concomitant]
     Dosage: 12.5 MG, BID
     Route: 048
     Dates: start: 20100323
  18. MECLIZINE [Concomitant]
     Dosage: 12.5 MG, BID
     Route: 048
     Dates: start: 20100323
  19. ZYRTEC [Concomitant]
     Dosage: 10 MG, QD
     Route: 048
     Dates: start: 20110512
  20. PRESERVISION LUTEIN EYE VITA.+MIN.SUP.SOFTG. [Concomitant]
     Dosage: 1 DF, QD
     Route: 048
     Dates: start: 20110414
  21. NORVASC [Concomitant]
     Dosage: 2.5 MG, QD
     Route: 048
     Dates: start: 20100917
  22. PREDNISONE TAB [Concomitant]

REACTIONS (11)
  - UPPER RESPIRATORY TRACT INFECTION [None]
  - DECREASED APPETITE [None]
  - MUSCLE SPASMS [None]
  - ORAL CANDIDIASIS [None]
  - HIP FRACTURE [None]
  - FALL [None]
  - WEIGHT DECREASED [None]
  - INTENTIONAL DRUG MISUSE [None]
  - RENAL FAILURE ACUTE [None]
  - DEHYDRATION [None]
  - DYSPHAGIA [None]
